FAERS Safety Report 22605965 (Version 4)
Quarter: 2024Q2

REPORT INFORMATION
  Report Type: Report from Study
  Country: CO (occurrence: CO)
  Receive Date: 20230615
  Receipt Date: 20240615
  Transmission Date: 20240716
  Serious: Yes (Other)
  Sender: FDA-Public Use
  Company Number: CO-SA-SAC20230419000791

PATIENT
  Age: 38 Year
  Sex: Female

DRUGS (2)
  1. ALEMTUZUMAB [Suspect]
     Active Substance: ALEMTUZUMAB
     Indication: Multiple sclerosis
     Dosage: 12 MG, EVERY CYCLE
     Route: 041
     Dates: start: 20230227, end: 20230303
  2. VALPROIC ACID [Suspect]
     Active Substance: VALPROIC ACID
     Indication: Seizure
     Dosage: 500 MG, Q12H
     Route: 065
     Dates: start: 20230418, end: 2023

REACTIONS (7)
  - Seizure [Recovering/Resolving]
  - Secondary progressive multiple sclerosis [Not Recovered/Not Resolved]
  - Disability [Not Recovered/Not Resolved]
  - Tuberculosis [Not Recovered/Not Resolved]
  - Feeling abnormal [Unknown]
  - Drug effect less than expected [Unknown]
  - Drug ineffective [Unknown]

NARRATIVE: CASE EVENT DATE: 20230101
